FAERS Safety Report 8731344 (Version 2)
Quarter: 2012Q4

REPORT INFORMATION
  Report Type: Report from Study
  Country: US (occurrence: US)
  Receive Date: 20120820
  Receipt Date: 20121009
  Transmission Date: 20130627
  Serious: Yes (Other)
  Sender: FDA-Public Use
  Company Number: US-JNJFOC-20120806506

PATIENT
  Age: 60 None
  Sex: Female
  Weight: 74.84 kg

DRUGS (12)
  1. REMICADE [Suspect]
     Indication: RHEUMATOID ARTHRITIS
     Route: 042
     Dates: end: 20120509
  2. METHOTREXATE [Concomitant]
     Indication: RHEUMATOID ARTHRITIS
     Route: 048
  3. PREDNISONE [Concomitant]
     Indication: SARCOIDOSIS
     Route: 048
  4. SINGULAIR [Concomitant]
     Indication: SARCOIDOSIS
     Route: 055
  5. PROTONIX [Concomitant]
     Indication: GASTROOESOPHAGEAL REFLUX DISEASE
     Route: 048
  6. FOLIC ACID [Concomitant]
     Route: 065
  7. VALTREX [Concomitant]
     Route: 065
  8. FOSAMAX [Concomitant]
     Route: 065
  9. ZYRTEC [Concomitant]
     Route: 065
  10. CALCIUM CITRATE [Concomitant]
     Route: 065
  11. FISH OIL [Concomitant]
     Route: 065
  12. MULTIVITAMINS [Concomitant]
     Route: 065

REACTIONS (6)
  - Skin infection [Recovering/Resolving]
  - Mass [Not Recovered/Not Resolved]
  - Cellulitis [Recovering/Resolving]
  - Lupus-like syndrome [Recovering/Resolving]
  - Erythema [Not Recovered/Not Resolved]
  - Antinuclear antibody positive [Not Recovered/Not Resolved]
